FAERS Safety Report 6527864-X (Version None)
Quarter: 2010Q1

REPORT INFORMATION
  Report Type: 
  Country: None (occurrence: None)
  Receive Date: 20100106
  Receipt Date: 20091228
  Transmission Date: 20100710
  Serious: Yes (Death, Hospitalization)
  Sender: FDA-Public Use
  Company Number: DE-TEVA-219248ISR

PATIENT
  Sex: Female
  Weight: 75 kg

DRUGS (3)
  1. GEMCITABINE [Suspect]
     Indication: LUNG ADENOCARCINOMA
     Route: 042
     Dates: start: 20091001, end: 20091201
  2. GEMCITABINE [Suspect]
     Indication: METASTASES TO BONE
  3. GEMCITABINE [Suspect]
     Indication: METASTASES TO ADRENALS

REACTIONS (1)
  - PNEUMONIA [None]
